FAERS Safety Report 24681076 (Version 2)
Quarter: 2025Q2

REPORT INFORMATION
  Report Type: Spontaneous
  Country: US (occurrence: US)
  Receive Date: 20241129
  Receipt Date: 20250602
  Transmission Date: 20250717
  Serious: No
  Sender: SANOFI AVENTIS
  Company Number: US-SA-2024SA345253

PATIENT
  Age: 46 Year
  Sex: Female

DRUGS (1)
  1. DUPIXENT [Suspect]
     Active Substance: DUPILUMAB
     Indication: Dermatitis atopic
     Dosage: 300 MG, QOW
     Route: 058

REACTIONS (6)
  - Eyelid margin crusting [Unknown]
  - Eye pain [Unknown]
  - Rebound eczema [Unknown]
  - Ocular hyperaemia [Unknown]
  - Vision blurred [Recovering/Resolving]
  - Dry eye [Recovering/Resolving]
